FAERS Safety Report 24372126 (Version 1)
Quarter: 2024Q3

REPORT INFORMATION
  Report Type: Spontaneous
  Country: JP (occurrence: JP)
  Receive Date: 20240927
  Receipt Date: 20240927
  Transmission Date: 20241017
  Serious: Yes (Hospitalization, Other)
  Sender: SANOFI AVENTIS
  Company Number: JP-MLMSERVICE-20240912-PI190515-00077-1

PATIENT
  Age: 68 Year
  Sex: Female

DRUGS (9)
  1. CAPECITABINE [Suspect]
     Active Substance: CAPECITABINE
     Indication: Adenocarcinoma of appendix
     Dosage: UNK, Q3W
  2. CAPECITABINE [Suspect]
     Active Substance: CAPECITABINE
     Indication: Metastases to lymph nodes
  3. CAPECITABINE [Suspect]
     Active Substance: CAPECITABINE
     Indication: Metastases to the mediastinum
  4. OXALIPLATIN [Suspect]
     Active Substance: OXALIPLATIN
     Indication: Adenocarcinoma of appendix
     Dosage: UNK UNK, Q3W (8 COURSES)
  5. OXALIPLATIN [Suspect]
     Active Substance: OXALIPLATIN
     Indication: Metastases to lymph nodes
  6. OXALIPLATIN [Suspect]
     Active Substance: OXALIPLATIN
     Indication: Metastases to the mediastinum
  7. BEVACIZUMAB [Suspect]
     Active Substance: BEVACIZUMAB
     Indication: Adenocarcinoma of appendix
     Dosage: UNK, Q3W
  8. BEVACIZUMAB [Suspect]
     Active Substance: BEVACIZUMAB
     Indication: Metastases to lymph nodes
  9. BEVACIZUMAB [Suspect]
     Active Substance: BEVACIZUMAB
     Indication: Metastases to the mediastinum

REACTIONS (9)
  - Brain abscess [Recovered/Resolved]
  - Parvimonas micra infection [Recovered/Resolved]
  - Fusobacterium infection [Recovered/Resolved]
  - Streptococcal infection [Recovered/Resolved]
  - Decreased appetite [Recovered/Resolved]
  - Pyrexia [Recovered/Resolved]
  - Occipital neuralgia [Recovered/Resolved]
  - Dizziness [Recovered/Resolved]
  - Hemiparesis [Recovering/Resolving]
